FAERS Safety Report 7099937-7 (Version None)
Quarter: 2010Q4

REPORT INFORMATION
  Report Type: 
  Country: None (occurrence: None)
  Receive Date: 20101112
  Receipt Date: 20101109
  Transmission Date: 20110411
  Serious: Yes (Other)
  Sender: FDA-Public Use
  Company Number: DE-SANOFI-AVENTIS-2010SA067997

PATIENT
  Sex: Female

DRUGS (1)
  1. LANTUS [Suspect]
     Route: 058

REACTIONS (1)
  - BREAST CANCER [None]
